FAERS Safety Report 10443974 (Version 1)
Quarter: 2014Q3

REPORT INFORMATION
  Report Type: Spontaneous
  Country: US (occurrence: US)
  Receive Date: 20140910
  Receipt Date: 20140910
  Transmission Date: 20150326
  Serious: No
  Sender: FDA-Public Use
  Company Number: US-TARO-2014P1003745

PATIENT
  Age: 57 Year
  Sex: Female
  Weight: 53.52 kg

DRUGS (4)
  1. UNSPECIFIED BLOOD PRESSURE MEDICATIONS [Concomitant]
  2. WARFARIN SODIUM TABLETS USP 3MG [Suspect]
     Active Substance: WARFARIN SODIUM
     Route: 048
     Dates: start: 20110712
  3. WARFARIN SODIUM TABLETS USP 6MG [Suspect]
     Active Substance: WARFARIN SODIUM
     Route: 048
     Dates: start: 20110712
  4. WARFARIN SODIUM TABLETS USP 4MG [Suspect]
     Active Substance: WARFARIN SODIUM
     Route: 048
     Dates: start: 20110712

REACTIONS (4)
  - Vascular injury [Unknown]
  - Haemoptysis [Unknown]
  - Blood urine present [Recovered/Resolved]
  - Peripheral swelling [Unknown]

NARRATIVE: CASE EVENT DATE: 20120216
